FAERS Safety Report 18215833 (Version 1)
Quarter: 2020Q3

REPORT INFORMATION
  Report Type: Report from Study
  Country: US (occurrence: US)
  Receive Date: 20200831
  Receipt Date: 20200831
  Transmission Date: 20201103
  Serious: Yes (Hospitalization)
  Sender: FDA-Public Use
  Company Number: US-ROCHE-2665757

PATIENT
  Age: 72 Year
  Sex: Male
  Weight: 85.1 kg

DRUGS (7)
  1. VENETOCLAX. [Suspect]
     Active Substance: VENETOCLAX
     Indication: DIFFUSE LARGE B-CELL LYMPHOMA
     Dosage: STRENGTH:800MG, QD/ 5 DAYS
     Route: 048
     Dates: start: 20200701
  2. IFOSFAMIDE. [Suspect]
     Active Substance: IFOSFAMIDE
     Indication: DIFFUSE LARGE B-CELL LYMPHOMA
     Dosage: STRENGTH: 5000MG/M2, D2 OF CYCLE NDC ID: 10019?926?02
     Route: 042
     Dates: start: 20200702
  3. PLERIXAFOR [Suspect]
     Active Substance: PLERIXAFOR
     Indication: PRODUCT USED FOR UNKNOWN INDICATION
     Route: 065
  4. RITUXIMAB. [Suspect]
     Active Substance: RITUXIMAB
     Indication: DIFFUSE LARGE B-CELL LYMPHOMA
     Dosage: 375MG/M2,
     Route: 041
     Dates: start: 20200701
  5. CARBOPLATIN. [Suspect]
     Active Substance: CARBOPLATIN
     Indication: DIFFUSE LARGE B-CELL LYMPHOMA
     Dosage: 10MG/ML, D2 OF CYCLE ONGOING:YES, NDC ID: 71288?100?45
     Route: 042
     Dates: start: 20200702
  6. ETOPOSIDE. [Suspect]
     Active Substance: ETOPOSIDE
     Indication: DIFFUSE LARGE B-CELL LYMPHOMA
     Dosage: 110MG/M2, QD/ 3 DAYS ONGOING:YES, NDC ID: 16729?114?08
     Route: 042
     Dates: start: 20200701
  7. GRANULOCYTE COLONY STIMULATING FACTOR [Concomitant]
     Active Substance: GRANULOCYTE COLONY-STIMULATING FACTOR NOS
     Dates: start: 20200731

REACTIONS (1)
  - Hemiparesis [Recovering/Resolving]

NARRATIVE: CASE EVENT DATE: 20200803
